FAERS Safety Report 9564170 (Version 2)
Quarter: 2013Q4

REPORT INFORMATION
  Report Type: Spontaneous
  Country: US (occurrence: US)
  Receive Date: 20130930
  Receipt Date: 20131213
  Transmission Date: 20140711
  Serious: Yes (Hospitalization, Other)
  Sender: FDA-Public Use
  Company Number: US-AMGEN-USASP2013068118

PATIENT
  Age: 52 Year
  Sex: Female

DRUGS (2)
  1. ENBREL [Suspect]
     Indication: RHEUMATOID ARTHRITIS
     Dosage: 50 MG, QWK
     Route: 065
     Dates: start: 20130429
  2. METHOTREXATE [Concomitant]
     Dosage: UNK
     Dates: start: 201304

REACTIONS (5)
  - Deep vein thrombosis [Not Recovered/Not Resolved]
  - Foot fracture [Not Recovered/Not Resolved]
  - Fall [Recovered/Resolved]
  - Mobility decreased [Unknown]
  - Arthralgia [Not Recovered/Not Resolved]
